FAERS Safety Report 17388397 (Version 1)
Quarter: 2020Q1

REPORT INFORMATION
  Report Type: Spontaneous
  Country: US (occurrence: US)
  Receive Date: 20200206
  Receipt Date: 20200206
  Transmission Date: 20200409
  Serious: Yes (Other)
  Sender: FDA-Public Use
  Company Number: US-SHIRE-US202003990

PATIENT
  Age: 16 Year
  Sex: Male

DRUGS (1)
  1. HUMAN NORMAL IMMUNOGLOBULIN [Suspect]
     Active Substance: HUMAN IMMUNOGLOBULIN G
     Indication: ACUTE RESPIRATORY DISTRESS SYNDROME
     Dosage: 400 MILLIGRAM/KILOGRAM, 1X/DAY:QD
     Route: 042

REACTIONS (3)
  - Haemolytic anaemia [Recovered/Resolved]
  - Infusion related reaction [Unknown]
  - Intentional product use issue [Unknown]
